FAERS Safety Report 9192896 (Version 1)
Quarter: 2013Q1

REPORT INFORMATION
  Report Type: Spontaneous
  Country: US (occurrence: None)
  Receive Date: 20130325
  Receipt Date: 20130325
  Transmission Date: 20140127
  Serious: Yes (Hospitalization, Other)
  Sender: FDA-Public Use
  Company Number: 2013-04437

PATIENT
  Age: 46 Year
  Sex: Female

DRUGS (6)
  1. OXALIPLATIN [Suspect]
     Indication: ADENOCARCINOMA OF COLON
     Dosage: 85 MG/M2, UNKNOWN, CYCLES 1 AND 2, UNKNOWN
  2. 5 FLUORO URACIL (FLUOROURACIL) [Concomitant]
  3. LEUCOVORIN? /00566701/ (FOLINIC ACID [Concomitant]
  4. DEXAMETHASONE (DEXAMETHASONE) [Concomitant]
  5. PROCHLORPERAZINE (PROCHLORPERAZINE) [Concomitant]
  6. ONDANSETRON (ONDANSETRON) [Concomitant]

REACTIONS (5)
  - Hepatocellular injury [None]
  - Ototoxicity [None]
  - Nausea [None]
  - Vertigo [None]
  - Tinnitus [None]
